FAERS Safety Report 4818270-4 (Version None)
Quarter: 2005Q3

REPORT INFORMATION
  Report Type: 
  Country: None (occurrence: None)
  Receive Date: 20050929
  Receipt Date: 20050630
  Transmission Date: 20060218
  Serious: No
  Sender: FDA-Public Use
  Company Number: 05P-163-0304713-00

PATIENT
  Age: 46 Year
  Sex: Female
  Weight: 71.6683 kg

DRUGS (4)
  1. HUMIRA [Suspect]
     Indication: RHEUMATOID ARTHRITIS
     Dosage: 40 MG, 1 IN 2 WK, SUBCUTANEOUS
     Route: 058
     Dates: start: 20050301
  2. SOTALOL HCL [Concomitant]
  3. FEXOFENADINE HYDROCHLORIDE [Concomitant]
  4. PREDNISONE [Concomitant]

REACTIONS (4)
  - ABDOMINAL DISTENSION [None]
  - ATRIAL FIBRILLATION [None]
  - FOOD CRAVING [None]
  - OEDEMA PERIPHERAL [None]
